FAERS Safety Report 23598933 (Version 1)
Quarter: 2024Q1

REPORT INFORMATION
  Report Type: Spontaneous
  Country: US (occurrence: US)
  Receive Date: 20240306
  Receipt Date: 20240306
  Transmission Date: 20240410
  Serious: No
  Sender: FDA-Public Use
  Company Number: US-JNJFOC-20240271807

PATIENT
  Age: 72 Year

DRUGS (2)
  1. CONCERTA [Suspect]
     Active Substance: METHYLPHENIDATE HYDROCHLORIDE
     Indication: Product used for unknown indication
     Dosage: STARTED CONCERTA ^22 YEARS^ AGO BEGINNING WITH 54MG
     Route: 048
  2. CONCERTA [Suspect]
     Active Substance: METHYLPHENIDATE HYDROCHLORIDE
     Dosage: NOW TAKES 2 OF THE 54MG CONCERTA
     Route: 048

REACTIONS (2)
  - Fall [Unknown]
  - Adverse event [Unknown]
